FAERS Safety Report 4931190-X (Version None)
Quarter: 2006Q1

REPORT INFORMATION
  Report Type: 
  Country: None (occurrence: None)
  Receive Date: 20060227
  Receipt Date: 20060220
  Transmission Date: 20060701
  Serious: Yes (Other)
  Sender: FDA-Public Use
  Company Number: 2006024624

PATIENT
  Age: 39 Year
  Sex: Male

DRUGS (5)
  1. GABAPENTIN [Suspect]
     Indication: NEURALGIA
     Dosage: 900 MG (300 MG, 3 IN 1 D), ORAL
     Route: 048
     Dates: start: 20060114
  2. MORPHINE SULFATE [Concomitant]
  3. ETORICOXIB (ETORICOXIB) [Concomitant]
  4. COMBIVIR [Concomitant]
  5. VIRAMINE (NEVIRAPINE) [Concomitant]

REACTIONS (3)
  - ASTHMA [None]
  - CONDITION AGGRAVATED [None]
  - DISEASE RECURRENCE [None]
